FAERS Safety Report 20575643 (Version 1)
Quarter: 2022Q1

REPORT INFORMATION
  Report Type: Other
  Country: CN (occurrence: None)
  Receive Date: 20220310
  Receipt Date: 20220310
  Transmission Date: 20220424
  Serious: Yes (Other)
  Sender: FDA-Public Use
  Company Number: CN-ROCHE-3042229

PATIENT
  Age: 71 Year
  Sex: Male

DRUGS (15)
  1. RITUXIMAB [Suspect]
     Active Substance: RITUXIMAB
     Indication: Mantle cell lymphoma
     Dosage: DAY0
     Route: 065
     Dates: start: 20200313
  2. RITUXIMAB [Suspect]
     Active Substance: RITUXIMAB
     Dosage: DAY0
     Route: 065
     Dates: start: 20200403
  3. RITUXIMAB [Suspect]
     Active Substance: RITUXIMAB
     Dosage: DAY0
     Route: 065
     Dates: start: 20200424
  4. CYCLOPHOSPHAMIDE [Suspect]
     Active Substance: CYCLOPHOSPHAMIDE
     Indication: Mantle cell lymphoma
     Dosage: DAY1
     Route: 065
     Dates: start: 20200313
  5. CYCLOPHOSPHAMIDE [Suspect]
     Active Substance: CYCLOPHOSPHAMIDE
     Dosage: DAY1
     Route: 065
     Dates: start: 20200403
  6. CYCLOPHOSPHAMIDE [Suspect]
     Active Substance: CYCLOPHOSPHAMIDE
     Dosage: DAY1
     Route: 065
     Dates: start: 20200424
  7. VINDESINE [Suspect]
     Active Substance: VINDESINE
     Indication: Mantle cell lymphoma
     Dosage: DAY1
     Route: 065
     Dates: start: 20200313
  8. VINDESINE [Suspect]
     Active Substance: VINDESINE
     Dosage: DAY1
     Route: 065
     Dates: start: 20200403
  9. VINDESINE [Suspect]
     Active Substance: VINDESINE
     Dosage: DAY1
     Route: 065
     Dates: start: 20200424
  10. DOXORUBICIN HYDROCHLORIDE [Suspect]
     Active Substance: DOXORUBICIN HYDROCHLORIDE
     Indication: Mantle cell lymphoma
     Dosage: DAY1
     Route: 065
     Dates: start: 20200313
  11. DOXORUBICIN HYDROCHLORIDE [Suspect]
     Active Substance: DOXORUBICIN HYDROCHLORIDE
     Dosage: DAY1
     Route: 065
     Dates: start: 20200403
  12. DOXORUBICIN HYDROCHLORIDE [Suspect]
     Active Substance: DOXORUBICIN HYDROCHLORIDE
     Dosage: DAY1
     Route: 065
     Dates: start: 20200424
  13. PREDNISONE [Suspect]
     Active Substance: PREDNISONE
     Indication: Mantle cell lymphoma
     Dosage: DAY1-5
     Route: 065
     Dates: start: 20200313
  14. PREDNISONE [Suspect]
     Active Substance: PREDNISONE
     Dosage: DAY1-5
     Route: 065
     Dates: start: 20200403
  15. PREDNISONE [Suspect]
     Active Substance: PREDNISONE
     Dosage: DAY1-5
     Route: 065
     Dates: start: 20200424

REACTIONS (6)
  - Myelosuppression [Unknown]
  - Pneumonia [Unknown]
  - Agranulocytosis [Recovered/Resolved]
  - Off label use [Unknown]
  - Hypersensitivity [Recovering/Resolving]
  - Pneumonitis [Recovering/Resolving]
